FAERS Safety Report 14992207 (Version 3)
Quarter: 2018Q2

REPORT INFORMATION
  Report Type: Spontaneous
  Country: US (occurrence: US)
  Receive Date: 20180608
  Receipt Date: 20180627
  Transmission Date: 20180711
  Serious: Yes (Hospitalization, Other)
  Sender: FDA-Public Use
  Company Number: US-009507513-0906USA02420

PATIENT
  Sex: Female

DRUGS (7)
  1. ZOCOR [Suspect]
     Active Substance: SIMVASTATIN
     Dosage: 80 MG, EACH EVENING
     Route: 048
  2. VANCOMYCIN [Concomitant]
     Active Substance: VANCOMYCIN
     Dosage: 1 G, EVERY 24H
     Route: 042
  3. NIACIN. [Suspect]
     Active Substance: NIACIN
     Dosage: 500 MG, EACH EVENING
  4. ESOMEPRAZOLE [Suspect]
     Active Substance: ESOMEPRAZOLE
     Dosage: 20 MG, QD
  5. CEFEPIME [Concomitant]
     Active Substance: CEFEPIME HYDROCHLORIDE
     Dosage: 1 G, Q12H
     Route: 042
  6. CUBICIN [Suspect]
     Active Substance: DAPTOMYCIN
     Indication: POST PROCEDURAL INFECTION
     Dosage: 7.2 MG/KG, QD (ALSO REPORTED AS Q24H)
     Route: 042
  7. CUBICIN [Suspect]
     Active Substance: DAPTOMYCIN
     Dosage: 7.2 MG/KG, Q48H
     Route: 042

REACTIONS (3)
  - Rhabdomyolysis [Recovered/Resolved]
  - Overdose [Unknown]
  - Acute kidney injury [Recovered/Resolved]
